FAERS Safety Report 20873382 (Version 1)
Quarter: 2022Q2

REPORT INFORMATION
  Report Type: Spontaneous
  Country: US (occurrence: None)
  Receive Date: 20220524
  Receipt Date: 20220524
  Transmission Date: 20220721
  Serious: Yes (Other)
  Sender: FDA-Public Use
  Company Number: None

PATIENT
  Age: 44 Year
  Sex: Female

DRUGS (17)
  1. OPSUMIT [Suspect]
     Active Substance: MACITENTAN
     Indication: Pulmonary hypertension
     Dosage: FREQUENCY : DAILY;?
     Route: 048
     Dates: start: 20151102
  2. TADALAFIL [Suspect]
     Active Substance: TADALAFIL
  3. UPTRAVI [Suspect]
     Active Substance: SELEXIPAG
  4. TADALAFIL [Concomitant]
     Active Substance: TADALAFIL
  5. METFORMIN [Concomitant]
     Active Substance: METFORMIN HYDROCHLORIDE
  6. GLIPIZIDE [Concomitant]
     Active Substance: GLIPIZIDE
  7. POTASSIUM CHLORIDE [Concomitant]
     Active Substance: POTASSIUM CHLORIDE
  8. FUROSEMIDE [Concomitant]
     Active Substance: FUROSEMIDE
  9. LISINOPRIL [Concomitant]
     Active Substance: LISINOPRIL
  10. OMEPRAZOLE [Concomitant]
     Active Substance: OMEPRAZOLE
  11. ALBUTEROL SULFATE [Concomitant]
     Active Substance: ALBUTEROL SULFATE
  12. IPRATROPIUM INHL SOLN [Concomitant]
  13. GABAPENTIN [Concomitant]
     Active Substance: GABAPENTIN
  14. VITAMIN D3 [Concomitant]
     Active Substance: CHOLECALCIFEROL
  15. ASTELIN [Concomitant]
     Active Substance: AZELASTINE HYDROCHLORIDE
  16. ERGOCALCIFEROL [Concomitant]
     Active Substance: ERGOCALCIFEROL
  17. VITAMIN D2 [Concomitant]
     Active Substance: ERGOCALCIFEROL

REACTIONS (5)
  - Dyspnoea [None]
  - Cough [None]
  - Pyrexia [None]
  - Myalgia [None]
  - Influenza A virus test positive [None]

NARRATIVE: CASE EVENT DATE: 20220516
